FAERS Safety Report 9912819 (Version 4)
Quarter: 2014Q2

REPORT INFORMATION
  Report Type: Spontaneous
  Country: US (occurrence: US)
  Receive Date: 20140220
  Receipt Date: 20140528
  Transmission Date: 20141212
  Serious: No
  Sender: FDA-Public Use
  Company Number: US-PFIZER INC-2014047587

PATIENT
  Sex: Male

DRUGS (1)
  1. CHANTIX [Suspect]
     Indication: SMOKING CESSATION THERAPY
     Dosage: UNK
     Dates: start: 2014

REACTIONS (4)
  - Hypersomnia [Unknown]
  - Retching [Not Recovered/Not Resolved]
  - Nausea [Recovering/Resolving]
  - Abnormal dreams [Recovering/Resolving]
